FAERS Safety Report 20853421 (Version 1)
Quarter: 2022Q2

REPORT INFORMATION
  Report Type: Spontaneous
  Country: GB (occurrence: GB)
  Receive Date: 20220520
  Receipt Date: 20220520
  Transmission Date: 20220721
  Serious: Yes (Other)
  Sender: FDA-Public Use
  Company Number: GB-MHRA-MED-202204172242586690-I7BE9

PATIENT
  Age: 31 Year
  Sex: Female

DRUGS (2)
  1. TRAMADOL [Suspect]
     Active Substance: TRAMADOL
     Indication: Neuralgia
     Dosage: 50 MILLIGRAM (50MG;)
  2. TRAMADOL [Suspect]
     Active Substance: TRAMADOL
     Indication: Pain

REACTIONS (2)
  - COVID-19 [Unknown]
  - Therapeutic response unexpected [Unknown]

NARRATIVE: CASE EVENT DATE: 20220416
